FAERS Safety Report 6930180-5 (Version None)
Quarter: 2010Q3

REPORT INFORMATION
  Report Type: 
  Country: None (occurrence: None)
  Receive Date: 20100818
  Receipt Date: 20100806
  Transmission Date: 20110219
  Serious: Yes (Hospitalization, Other)
  Sender: FDA-Public Use
  Company Number: JP-PFIZER INC-2010099313

PATIENT
  Age: 78 Year
  Sex: Male
  Weight: 54 kg

DRUGS (12)
  1. SUNITINIB MALATE [Suspect]
     Indication: RENAL CELL CARCINOMA
     Dosage: 25 MG, 1X/DAY
     Route: 048
     Dates: start: 20090403, end: 20090625
  2. GLYSENNID [Concomitant]
     Dosage: 2 DF, 1X/DAY
     Route: 048
  3. NOVAMIN [Concomitant]
     Indication: RENAL CELL CARCINOMA
     Dosage: 5 MG, 3X/DAY
     Route: 048
  4. LOXONIN [Concomitant]
     Indication: RENAL CELL CARCINOMA
     Dosage: 60 MG, 3X/DAY
     Route: 048
  5. OXYCONTIN [Concomitant]
     Indication: RENAL CELL CARCINOMA
     Dosage: 5 MG, 2X/DAY
     Route: 048
  6. MYSLEE [Concomitant]
     Dosage: 10 MG, 1X/DAY
     Route: 048
  7. GASMOTIN [Concomitant]
     Dosage: 5 MG, 3X/DAY
     Route: 048
     Dates: start: 20090501
  8. MUCOSTA [Concomitant]
     Dosage: 1 DF, 3X/DAY
     Dates: start: 20090501
  9. OXINORM [Concomitant]
     Indication: RENAL CELL CARCINOMA
     Dosage: UNK
     Route: 048
     Dates: start: 20090508
  10. INDERAL [Concomitant]
     Dosage: 5 MG, 3X/DAY
     Route: 048
     Dates: start: 20090508
  11. MERCAZOLE [Concomitant]
     Dosage: 5 MG, 1X/DAY
     Route: 048
     Dates: start: 20090508
  12. NEUTROGIN [Concomitant]
     Dosage: 100 UG, 1X/DAY
     Route: 058
     Dates: start: 20090428, end: 20090429

REACTIONS (2)
  - PNEUMONIA ASPIRATION [None]
  - PNEUMONIA BACTERIAL [None]
